FAERS Safety Report 14441568 (Version 6)
Quarter: 2018Q1

REPORT INFORMATION
  Report Type: Spontaneous
  Country: US (occurrence: US)
  Receive Date: 20180125
  Receipt Date: 20180320
  Transmission Date: 20180509
  Serious: Yes (Hospitalization, Other)
  Sender: FDA-Public Use
  Company Number: US-GLAXOSMITHKLINE-US2018011291

PATIENT
  Age: 76 Year
  Sex: Female

DRUGS (6)
  1. VENTOLIN HFA [Suspect]
     Active Substance: ALBUTEROL SULFATE
     Dosage: 1 PUFF(S), TID
     Route: 055
     Dates: end: 20171229
  2. BREO ELLIPTA [Suspect]
     Active Substance: FLUTICASONE FUROATE\VILANTEROL TRIFENATATE
     Indication: PRODUCT USED FOR UNKNOWN INDICATION
     Route: 055
  3. OXYGEN. [Concomitant]
     Active Substance: OXYGEN
  4. VENTOLIN HFA [Suspect]
     Active Substance: ALBUTEROL SULFATE
     Indication: CHRONIC OBSTRUCTIVE PULMONARY DISEASE
     Dosage: 2 PUFF(S), QID
     Route: 055
  5. VENTOLIN HFA [Suspect]
     Active Substance: ALBUTEROL SULFATE
     Indication: ASTHMA
     Dosage: 2 PUFF(S), QID
  6. CODEINE [Concomitant]
     Active Substance: CODEINE

REACTIONS (21)
  - Pneumonia [Recovered/Resolved]
  - Product storage error [Unknown]
  - Intensive care [Recovered/Resolved]
  - Respiratory arrest [Recovered/Resolved]
  - Fatigue [Recovering/Resolving]
  - Upper respiratory tract congestion [Recovered/Resolved]
  - Overdose [Recovered/Resolved]
  - Drug effect decreased [Unknown]
  - Cough [Recovered/Resolved]
  - Product use in unapproved indication [Recovered/Resolved]
  - Breath sounds abnormal [Recovered/Resolved]
  - Ill-defined disorder [Recovered/Resolved]
  - Oral pain [Recovered/Resolved]
  - Dyspnoea [Recovered/Resolved]
  - Loss of consciousness [Recovered/Resolved]
  - Mechanical ventilation [Recovered/Resolved]
  - Throat clearing [Recovered/Resolved]
  - Home care [Not Recovered/Not Resolved]
  - Product quality issue [Unknown]
  - Bronchitis [Recovering/Resolving]
  - Peak expiratory flow rate decreased [Recovering/Resolving]

NARRATIVE: CASE EVENT DATE: 201711
